FAERS Safety Report 16922741 (Version 1)
Quarter: 2019Q4

REPORT INFORMATION
  Report Type: Spontaneous
  Country: DE (occurrence: DE)
  Receive Date: 20191016
  Receipt Date: 20191016
  Transmission Date: 20200122
  Serious: Yes (Other)
  Sender: FDA-Public Use
  Company Number: ALC2019DE001015

PATIENT

DRUGS (8)
  1. OFLOXACIN. [Suspect]
     Active Substance: OFLOXACIN
     Indication: PREOPERATIVE CARE
  2. BEPANTHEN [DEXPANTHENOL] [Suspect]
     Active Substance: DEXPANTHENOL
     Indication: PRODUCT USED FOR UNKNOWN INDICATION
     Dosage: UNK
     Route: 065
     Dates: start: 2019
  3. ARTELAC [HYPROMELLOSE] [Suspect]
     Active Substance: HYPROMELLOSES
     Indication: PRODUCT USED FOR UNKNOWN INDICATION
     Dosage: UNK
     Route: 065
     Dates: start: 2019
  4. OFLOXACIN. [Suspect]
     Active Substance: OFLOXACIN
     Indication: EYE INFLAMMATION
     Dosage: UNK
     Route: 065
     Dates: start: 201901
  5. SYSTANE (HYPROMELLOSE 2910 (4000 MPA.S)) [Suspect]
     Active Substance: HYPROMELLOSE 2910 (4000 MPA.S)
     Indication: PRODUCT USED FOR UNKNOWN INDICATION
     Dosage: UNK
     Route: 065
     Dates: start: 2019
  6. EFEROX [Concomitant]
     Active Substance: LEVOTHYROXINE SODIUM
     Indication: PRODUCT USED FOR UNKNOWN INDICATION
     Dosage: UNK
     Route: 065
  7. THEALOZ [Suspect]
     Active Substance: TREHALOSE
     Indication: PRODUCT USED FOR UNKNOWN INDICATION
     Dosage: UNK
     Route: 065
     Dates: start: 2019
  8. PREDNISOLONE ACETATE. [Suspect]
     Active Substance: PREDNISOLONE ACETATE
     Indication: EYE INFLAMMATION
     Dosage: UNK
     Route: 065
     Dates: start: 2019

REACTIONS (14)
  - Pruritus [Unknown]
  - Eye irritation [Unknown]
  - Impaired quality of life [Unknown]
  - Skin disorder [Unknown]
  - Contraindicated product administered [Unknown]
  - Dry eye [Unknown]
  - Lacrimation increased [Unknown]
  - Sensation of foreign body [Unknown]
  - Headache [Unknown]
  - Eye inflammation [Not Recovered/Not Resolved]
  - Nasopharyngitis [Unknown]
  - Pulmonary congestion [Unknown]
  - Rhinitis [Unknown]
  - Arthropathy [Unknown]

NARRATIVE: CASE EVENT DATE: 2019
